FAERS Safety Report 8185785-3 (Version None)
Quarter: 2012Q1

REPORT INFORMATION
  Report Type: 
  Country: None (occurrence: None)
  Receive Date: 20120305
  Receipt Date: 20120227
  Transmission Date: 20120608
  Serious: Yes (Hospitalization)
  Sender: FDA-Public Use
  Company Number: US-ASTRAZENECA-2012SE13297

PATIENT
  Age: 24 Year
  Sex: Male

DRUGS (7)
  1. VANDETANIB [Suspect]
     Indication: THYROID CANCER
     Route: 048
  2. MAGNESIUM OXIDE [Concomitant]
     Route: 048
  3. SYNTHROID [Concomitant]
     Route: 048
  4. PHOSLO [Concomitant]
     Route: 048
  5. CALCITRIOL [Concomitant]
     Route: 048
  6. CALCIUM 500 + D [Concomitant]
     Route: 048
  7. TESSALON [Concomitant]
     Route: 048

REACTIONS (3)
  - BLOOD CALCITONIN INCREASED [None]
  - FATIGUE [None]
  - NAUSEA [None]
